FAERS Safety Report 15673203 (Version 1)
Quarter: 2018Q4

REPORT INFORMATION
  Report Type: Spontaneous
  Country: US (occurrence: US)
  Receive Date: 20181129
  Receipt Date: 20181129
  Transmission Date: 20190205
  Serious: No
  Sender: FDA-Public Use
  Company Number: US-PFIZER INC-2018481084

PATIENT
  Age: 46 Year
  Sex: Female
  Weight: 171.88 kg

DRUGS (1)
  1. XELJANZ [Suspect]
     Active Substance: TOFACITINIB CITRATE
     Indication: RHEUMATOID ARTHRITIS
     Dosage: 5 MG, TWICE DAILY
     Route: 048
     Dates: start: 201711

REACTIONS (4)
  - Road traffic accident [Unknown]
  - Limb injury [Unknown]
  - Back injury [Unknown]
  - Neck injury [Unknown]
